FAERS Safety Report 6543205-6 (Version None)
Quarter: 2010Q1

REPORT INFORMATION
  Report Type: 
  Country: None (occurrence: None)
  Receive Date: 20100120
  Receipt Date: 20100112
  Transmission Date: 20100710
  Serious: Yes (Hospitalization)
  Sender: FDA-Public Use
  Company Number: ZA-BRISTOL-MYERS SQUIBB COMPANY-14915805

PATIENT
  Age: 50 Year
  Sex: Male
  Weight: 64 kg

DRUGS (3)
  1. CETUXIMAB [Suspect]
     Indication: NON-SMALL CELL LUNG CANCER
     Dosage: RECENT INF - 14DEC09, TEMP DISC ON 23DEC2009 5MG/ML STRENGTH
     Route: 042
     Dates: start: 20091124
  2. PACLITAXEL [Suspect]
     Indication: NON-SMALL CELL LUNG CANCER
     Dosage: DAY 1 OF 21 DAY CYCLE RECENT INF - 14DEC09
     Route: 042
     Dates: start: 20091125
  3. CARBOPLATIN [Suspect]
     Indication: NON-SMALL CELL LUNG CANCER
     Dosage: 1DF - 6AUC(DAY 1 OF 21 CYCLE) RECENT INF - 14DEC09
     Route: 042
     Dates: start: 20091125

REACTIONS (1)
  - DEEP VEIN THROMBOSIS [None]
